FAERS Safety Report 5780177-6 (Version None)
Quarter: 2008Q2

REPORT INFORMATION
  Report Type: 
  Country: None (occurrence: None)
  Receive Date: 20080620
  Receipt Date: 20080606
  Transmission Date: 20081010
  Serious: Yes (Congenital Anomaly)
  Sender: FDA-Public Use
  Company Number: FR-ROCHE-569265

PATIENT
  Sex: Male
  Weight: 3.3 kg

DRUGS (4)
  1. VALIUM [Suspect]
     Indication: DRUG USE FOR UNKNOWN INDICATION
     Route: 064
  2. URBANYL [Suspect]
     Indication: DRUG USE FOR UNKNOWN INDICATION
     Dosage: DOSAGE REGIMEN REPORTED AS: 3 DOSES DAILY.
     Route: 064
  3. EPITOMAX [Suspect]
     Indication: DRUG USE FOR UNKNOWN INDICATION
     Route: 064
  4. TEGRETOL [Suspect]
     Indication: DRUG USE FOR UNKNOWN INDICATION
     Route: 064

REACTIONS (3)
  - HYPOTONIA [None]
  - ILL-DEFINED DISORDER [None]
  - IRRITABILITY [None]
